FAERS Safety Report 18761657 (Version 2)
Quarter: 2021Q2

REPORT INFORMATION
  Report Type: Report from Study
  Country: PL (occurrence: PL)
  Receive Date: 20210120
  Receipt Date: 20210407
  Transmission Date: 20210717
  Serious: Yes (Hospitalization)
  Sender: FDA-Public Use
  Company Number: PL-JNJFOC-20201218048

PATIENT
  Age: 20 Year
  Sex: Male
  Weight: 67.4 kg

DRUGS (12)
  1. ENCORTON [PREDNISONE] [Concomitant]
     Active Substance: PREDNISONE
     Dates: start: 20200815, end: 20200829
  2. PENTASA [Concomitant]
     Active Substance: MESALAMINE
     Indication: CROHN^S DISEASE
     Dates: start: 20190528
  3. VEDOLIZUMAB [Concomitant]
     Active Substance: VEDOLIZUMAB
     Indication: CROHN^S DISEASE
     Dates: start: 202103
  4. ENCORTON [PREDNISONE] [Concomitant]
     Active Substance: PREDNISONE
     Dates: start: 20200326, end: 20200715
  5. ENCORTON [PREDNISONE] [Concomitant]
     Active Substance: PREDNISONE
     Dates: start: 20200716, end: 20200730
  6. ENCORTON [PREDNISONE] [Concomitant]
     Active Substance: PREDNISONE
     Dates: start: 202103
  7. ENCORTON [PREDNISONE] [Concomitant]
     Active Substance: PREDNISONE
     Dates: start: 20200926, end: 20201101
  8. ENCORTON [PREDNISONE] [Concomitant]
     Active Substance: PREDNISONE
     Dates: start: 20201216, end: 202103
  9. SPASMOLINA [Concomitant]
     Active Substance: ALVERINE CITRATE
     Indication: PRODUCT USED FOR UNKNOWN INDICATION
     Dates: start: 20200926, end: 20200926
  10. ADALIMUMAB [Suspect]
     Active Substance: ADALIMUMAB
     Indication: CROHN^S DISEASE
     Route: 058
  11. ENCORTON [PREDNISONE] [Concomitant]
     Active Substance: PREDNISONE
     Dates: start: 20200731, end: 20200814
  12. ENCORTON [PREDNISONE] [Concomitant]
     Active Substance: PREDNISONE
     Indication: CROHN^S DISEASE
     Dates: start: 201904, end: 20200207

REACTIONS (1)
  - Clostridium difficile infection [Recovered/Resolved]

NARRATIVE: CASE EVENT DATE: 20201204
